FAERS Safety Report 25674513 (Version 1)
Quarter: 2025Q3

REPORT INFORMATION
  Report Type: Spontaneous
  Country: JP (occurrence: JP)
  Receive Date: 20250813
  Receipt Date: 20250813
  Transmission Date: 20251021
  Serious: Yes (Other)
  Sender: GILEAD
  Company Number: JP-GILEAD-2025-0724146

PATIENT
  Age: 54 Year
  Sex: Female

DRUGS (2)
  1. VEMLIDY [Suspect]
     Active Substance: TENOFOVIR ALAFENAMIDE FUMARATE
     Indication: Chronic hepatitis B
     Route: 048
     Dates: start: 2021, end: 2024
  2. VEMLIDY [Suspect]
     Active Substance: TENOFOVIR ALAFENAMIDE FUMARATE
     Route: 048
     Dates: start: 2025

REACTIONS (2)
  - Acute hepatitis B [Recovered/Resolved]
  - Product dose omission in error [Recovered/Resolved]

NARRATIVE: CASE EVENT DATE: 20240101
